FAERS Safety Report 7959396-6 (Version None)
Quarter: 2011Q4

REPORT INFORMATION
  Report Type: 
  Country: None (occurrence: None)
  Receive Date: 20111206
  Receipt Date: 20111129
  Transmission Date: 20120403
  Serious: No
  Sender: FDA-Public Use
  Company Number: US-B.I. PHARMACEUTICALS,INC./RIDGEFIELD-2011-BP-25508BP

PATIENT
  Sex: Female

DRUGS (10)
  1. DOCUSATE SODIUM [Concomitant]
     Indication: MALNUTRITION
     Dates: start: 20100101
  2. DICYCLOMINE [Concomitant]
     Indication: ABDOMINAL PAIN UPPER
     Dates: start: 20101230
  3. PRADAXA [Suspect]
     Indication: ATRIAL FIBRILLATION
     Dosage: 300 MG
     Route: 048
     Dates: start: 20111021
  4. OMEPRAZOLE [Concomitant]
     Indication: GASTROOESOPHAGEAL REFLUX DISEASE
     Dosage: 20 MG
     Route: 048
     Dates: start: 20080101
  5. SIMVASTATIN [Concomitant]
     Indication: BLOOD CHOLESTEROL INCREASED
     Dosage: 40 MG
     Route: 048
     Dates: start: 20090101
  6. BENICAR [Concomitant]
     Indication: HYPERTENSION
     Route: 048
     Dates: start: 20100101
  7. LEVOTHYROXINE SODIUM [Concomitant]
     Indication: HYPOTHYROIDISM
     Dosage: 50 MCG
     Route: 048
     Dates: start: 20080101
  8. IBUPROFEN [Concomitant]
     Indication: BACK PAIN
     Dosage: 600 MG
     Route: 048
     Dates: start: 20100101
  9. MULTI-VITAMINS [Concomitant]
     Indication: SUPPLEMENTATION THERAPY
     Dates: start: 20060101
  10. SYMBICORT [Concomitant]
     Indication: ASTHMA
     Dates: start: 20080101

REACTIONS (1)
  - BACK PAIN [None]
